FAERS Safety Report 8190512-X (Version None)
Quarter: 2012Q1

REPORT INFORMATION
  Report Type: 
  Country: None (occurrence: None)
  Receive Date: 20120307
  Receipt Date: 20120302
  Transmission Date: 20120608
  Serious: Yes (Hospitalization)
  Sender: FDA-Public Use
  Company Number: IT-AMGEN-ITACT2012014086

PATIENT
  Age: 69 Year
  Sex: Male
  Weight: 76 kg

DRUGS (5)
  1. DILTIAZEM [Concomitant]
     Indication: HYPERTENSION
     Dosage: 180 MG, UNK
     Dates: start: 20110606
  2. TRINIPLAS [Concomitant]
     Dosage: 10 MG, UNK
     Route: 062
     Dates: start: 20110606
  3. NYSTATINE [Concomitant]
     Indication: MUCOSAL INFLAMMATION
     Dosage: 3 UNK, UNK
     Dates: start: 20110606
  4. PANITUMUMAB [Suspect]
     Indication: COLORECTAL CANCER METASTATIC
     Dosage: UNK
  5. IRINOTECAN HCL [Concomitant]
     Dosage: 214 UNK, UNK
     Dates: end: 20110802

REACTIONS (2)
  - GASTRIC ULCER [None]
  - MUCOSAL INFLAMMATION [None]
